FAERS Safety Report 6865822-6 (Version None)
Quarter: 2010Q3

REPORT INFORMATION
  Report Type: 
  Country: None (occurrence: None)
  Receive Date: 20100720
  Receipt Date: 20100715
  Transmission Date: 20110219
  Serious: Yes (Life-Threatening)
  Sender: FDA-Public Use
  Company Number: 7011101

PATIENT
  Age: 38 Year
  Sex: Male
  Weight: 76 kg

DRUGS (3)
  1. REBIF [Suspect]
     Indication: RELAPSING-REMITTING MULTIPLE SCLEROSIS
     Dosage: SUBCUTANEOUS
     Route: 058
     Dates: end: 20100714
  2. TEMAZEPAM [Concomitant]
  3. CELEXA [Concomitant]

REACTIONS (2)
  - DRUG ABUSE [None]
  - SUICIDE ATTEMPT [None]
